FAERS Safety Report 7969802-9 (Version None)
Quarter: 2011Q4

REPORT INFORMATION
  Report Type: 
  Country: None (occurrence: None)
  Receive Date: 20111212
  Receipt Date: 20111130
  Transmission Date: 20120403
  Serious: Yes (Other)
  Sender: FDA-Public Use
  Company Number: US-BAYER-2011-006330

PATIENT
  Age: 30 Year
  Sex: Female
  Weight: 59.864 kg

DRUGS (3)
  1. YASMIN [Suspect]
     Indication: ORAL CONTRACEPTION
     Dosage: UNK
     Dates: start: 20050401, end: 20070701
  2. MINOCYCLINE HCL [Concomitant]
     Dosage: 100 MG, UNK
     Route: 048
  3. PROTONIX [Concomitant]
     Dosage: 40 MG, UNK
     Route: 048

REACTIONS (9)
  - BILIARY COLIC [None]
  - ABDOMINAL PAIN [None]
  - BACK PAIN [None]
  - EMOTIONAL DISTRESS [None]
  - CHOLECYSTITIS [None]
  - VOMITING [None]
  - GALLBLADDER DISORDER [None]
  - ANXIETY [None]
  - NAUSEA [None]
